FAERS Safety Report 18600186 (Version 1)
Quarter: 2020Q4

REPORT INFORMATION
  Report Type: Spontaneous
  Country: US (occurrence: US)
  Receive Date: 20201210
  Receipt Date: 20201210
  Transmission Date: 20210114
  Serious: No
  Sender: FDA-Public Use
  Company Number: US-PFIZER INC-2020485517

PATIENT
  Age: 62 Year
  Sex: Female
  Weight: 56.7 kg

DRUGS (1)
  1. ESTRING [Suspect]
     Active Substance: ESTRADIOL
     Indication: DYSPAREUNIA
     Dosage: 2MG, EVERY 3 MONTHS (INSERT 1 RING VAGINALLY EVERY 3 MONTHS)
     Route: 067
     Dates: start: 202009, end: 202009

REACTIONS (2)
  - Illness [Unknown]
  - Off label use [Unknown]
